FAERS Safety Report 24635667 (Version 1)
Quarter: 2024Q4

REPORT INFORMATION
  Report Type: Spontaneous
  Country: US (occurrence: US)
  Receive Date: 20241119
  Receipt Date: 20241119
  Transmission Date: 20250115
  Serious: No
  Sender: CATALYST PHARMA
  Company Number: US-CATALYST PHARMACEUTICALS-US-CATA-24-00915

PATIENT
  Age: 7 Year
  Sex: Male
  Weight: 21.995 kg

DRUGS (3)
  1. AGAMREE [Suspect]
     Active Substance: VAMOROLONE
     Indication: Duchenne muscular dystrophy
     Dosage: 3.3 ML DAILY
     Route: 048
     Dates: start: 20240614
  2. ATALUREN [Concomitant]
     Active Substance: ATALUREN
     Indication: Product used for unknown indication
     Dosage: 250 MG IN THE MORNING AND AT NOON, THEN 375 MG EVERY NIGHT
     Route: 065
  3. VITAMINS [Concomitant]
     Active Substance: VITAMINS
     Indication: Product used for unknown indication
     Dosage: ONCE DAILY
     Route: 065

REACTIONS (2)
  - Enuresis [Recovered/Resolved]
  - Condition aggravated [Recovered/Resolved]

NARRATIVE: CASE EVENT DATE: 20240614
